FAERS Safety Report 9001102 (Version 3)
Quarter: 2013Q1

REPORT INFORMATION
  Report Type: Spontaneous
  Country: US (occurrence: None)
  Receive Date: 20130104
  Receipt Date: 20130311
  Transmission Date: 20140127
  Serious: Yes (Other)
  Sender: FDA-Public Use
  Company Number: ADR-2012-02329

PATIENT
  Age: 56 Year
  Sex: Female

DRUGS (3)
  1. BACLOFEN INTRATHECAL [Suspect]
     Indication: PAIN
  2. CLONIDINE [Concomitant]
  3. DILAUDID (HYDROMORPHONE) [Concomitant]

REACTIONS (5)
  - Drug ineffective [None]
  - Pain in extremity [None]
  - Contusion [None]
  - Nerve injury [None]
  - Device breakage [None]
